FAERS Safety Report 15683613 (Version 1)
Quarter: 2018Q4

REPORT INFORMATION
  Report Type: Spontaneous
  Country: JP (occurrence: JP)
  Receive Date: 20181204
  Receipt Date: 20181204
  Transmission Date: 20190205
  Serious: Yes (Other)
  Sender: FDA-Public Use
  Company Number: JP-PFIZER INC-2018495621

PATIENT
  Sex: Female

DRUGS (4)
  1. MOHRUS [Concomitant]
     Active Substance: KETOPROFEN
  2. LYRICA [Suspect]
     Active Substance: PREGABALIN
     Dosage: 75 MG, UNK
  3. LYRICA [Suspect]
     Active Substance: PREGABALIN
     Dosage: 25 MG, UNK
  4. SOLETON [Concomitant]
     Active Substance: ZALTOPROFEN

REACTIONS (2)
  - Arrhythmia [Unknown]
  - Feeling cold [Unknown]
